FAERS Safety Report 14840503 (Version 1)
Quarter: 2018Q2

REPORT INFORMATION
  Report Type: Spontaneous
  Country: US (occurrence: US)
  Receive Date: 20180503
  Receipt Date: 20180503
  Transmission Date: 20180711
  Serious: No
  Sender: FDA-Public Use
  Company Number: US-ASTRAZENECA-2018SE43289

PATIENT
  Sex: Female
  Weight: 47.6 kg

DRUGS (3)
  1. CALCIUM [Concomitant]
     Active Substance: CALCIUM
     Route: 048
  2. IRON [Concomitant]
     Active Substance: IRON
     Route: 048
  3. GENERIC CRESTOR [Suspect]
     Active Substance: ROSUVASTATIN CALCIUM
     Indication: BLOOD CHOLESTEROL
     Route: 048

REACTIONS (4)
  - Visual impairment [Not Recovered/Not Resolved]
  - Dry eye [Not Recovered/Not Resolved]
  - Vision blurred [Not Recovered/Not Resolved]
  - Panic disorder [Not Recovered/Not Resolved]
